FAERS Safety Report 9216342 (Version 4)
Quarter: 2017Q3

REPORT INFORMATION
  Report Type: Report from Study
  Country: JP (occurrence: JP)
  Receive Date: 20130408
  Receipt Date: 20170915
  Transmission Date: 20171128
  Serious: Yes (Death, Hospitalization, Other)
  Sender: FDA-Public Use
  Company Number: PHHY2010JP64024

PATIENT
  Age: 57 Year
  Sex: Male

DRUGS (12)
  1. NEXAVAR [Concomitant]
     Active Substance: SORAFENIB
     Indication: METASTATIC RENAL CELL CARCINOMA
     Dosage: 800 MG, UNK
     Route: 048
     Dates: start: 201101
  2. ZOMETA [Concomitant]
     Active Substance: ZOLEDRONIC ACID
     Indication: METASTATIC RENAL CELL CARCINOMA
     Dosage: 4 MG, UNK
     Route: 042
     Dates: start: 20100602
  3. VOLTAREN [Concomitant]
     Active Substance: DICLOFENAC SODIUM
     Indication: METASTATIC RENAL CELL CARCINOMA
     Dosage: 50 MG, QD
     Route: 048
     Dates: start: 20100602
  4. DUROTEP [Concomitant]
     Active Substance: FENTANYL
     Indication: METASTATIC RENAL CELL CARCINOMA
     Dosage: 25.2 MG, TID
     Route: 065
     Dates: start: 20100602
  5. AFINITOR [Suspect]
     Active Substance: EVEROLIMUS
     Dosage: 5 MG, QD
     Route: 048
     Dates: start: 20100913, end: 20101110
  6. AMLODIN [Concomitant]
     Active Substance: AMLODIPINE BESYLATE
     Indication: PRODUCT USED FOR UNKNOWN INDICATION
     Dosage: 5 MG, UNK
     Route: 048
     Dates: start: 20100602
  7. AFINITOR [Suspect]
     Active Substance: EVEROLIMUS
     Indication: METASTATIC RENAL CELL CARCINOMA
     Dosage: 10 MG, QD
     Route: 048
     Dates: start: 20100602, end: 20100811
  8. MAGMITT KENEI [Concomitant]
     Indication: PRODUCT USED FOR UNKNOWN INDICATION
     Dosage: 1980 MG, QD
     Route: 048
     Dates: start: 20100602
  9. TAKEPRON [Concomitant]
     Active Substance: LANSOPRAZOLE
     Indication: PRODUCT USED FOR UNKNOWN INDICATION
     Dosage: 15 MG, QD
     Route: 048
     Dates: start: 20100602
  10. TRAVELMIN [Concomitant]
     Active Substance: DIMENHYDRINATE
     Indication: PRODUCT USED FOR UNKNOWN INDICATION
     Dosage: 3 DF, QD
     Route: 048
     Dates: start: 20100602
  11. MUCOSTA [Concomitant]
     Active Substance: REBAMIPIDE
     Indication: PROPHYLAXIS
     Dosage: 300 MG, QD
     Route: 048
     Dates: start: 20100602
  12. THYRADIN [Concomitant]
     Active Substance: LEVOTHYROXINE
     Indication: PRODUCT USED FOR UNKNOWN INDICATION
     Dosage: 150 UG, UNK
     Route: 048
     Dates: start: 20100602

REACTIONS (13)
  - Malignant neoplasm progression [Fatal]
  - Blood urea increased [Recovered/Resolved]
  - Blood creatinine increased [Recovered/Resolved]
  - Blood creatinine increased [Recovered/Resolved]
  - Anaemia [Recovered/Resolved]
  - Pleural effusion [Recovering/Resolving]
  - C-reactive protein increased [Unknown]
  - Metastases to liver [Fatal]
  - Metastases to central nervous system [Fatal]
  - Toxic skin eruption [Recovering/Resolving]
  - Blood urea increased [Recovered/Resolved]
  - Metastatic renal cell carcinoma [Fatal]
  - Acarodermatitis [Recovered/Resolved]

NARRATIVE: CASE EVENT DATE: 20100811
